FAERS Safety Report 22187885 (Version 1)
Quarter: 2023Q2

REPORT INFORMATION
  Report Type: Spontaneous
  Country: US (occurrence: US)
  Receive Date: 20230408
  Receipt Date: 20230408
  Transmission Date: 20230721
  Serious: No
  Sender: FDA-Public Use
  Company Number: US-ABBVIE-4332161

PATIENT
  Sex: Male
  Weight: 74.842 kg

DRUGS (2)
  1. RINVOQ [Suspect]
     Active Substance: UPADACITINIB
     Indication: Product used for unknown indication
     Route: 048
  2. EUCRISA [Concomitant]
     Active Substance: CRISABOROLE
     Indication: Eczema
     Route: 061
     Dates: start: 20230228

REACTIONS (1)
  - Adverse drug reaction [Unknown]
